FAERS Safety Report 5357999-9 (Version None)
Quarter: 2007Q2

REPORT INFORMATION
  Report Type: 
  Country: None (occurrence: None)
  Receive Date: 20070612
  Receipt Date: 20070605
  Transmission Date: 20071010
  Serious: Yes (Death, Other)
  Sender: FDA-Public Use
  Company Number: 163-21880-07010436

PATIENT
  Age: 77 Year
  Sex: Female

DRUGS (10)
  1. REVLIMID [Suspect]
     Indication: ANAEMIA
     Dosage: 10 MG, 1 IN 1 D, ORAL
     Route: 048
     Dates: start: 20061120, end: 20061227
  2. REVLIMID [Suspect]
     Indication: LEUKOPENIA
     Dosage: 10 MG, 1 IN 1 D, ORAL
     Route: 048
     Dates: start: 20061120, end: 20061227
  3. REVLIMID [Suspect]
     Indication: MYELODYSPLASTIC SYNDROME
     Dosage: 10 MG, 1 IN 1 D, ORAL
     Route: 048
     Dates: start: 20061120, end: 20061227
  4. ONE-A-DAY VITAMINS (VITAMINS) [Concomitant]
  5. Q GEL (UBIDECARENON) [Concomitant]
  6. HOMOSYSTINE TRICALCIUM (HOMOCYSTEINE FORMULA) [Concomitant]
  7. VITAMIN E [Concomitant]
  8. AVAPRO [Concomitant]
  9. DILANTIN KAPSEAL [Concomitant]
  10. PHENOBARBITAL TAB [Concomitant]

REACTIONS (4)
  - ACUTE MYELOID LEUKAEMIA [None]
  - CLOSTRIDIAL INFECTION [None]
  - DISEASE PROGRESSION [None]
  - MEGACOLON [None]
